FAERS Safety Report 16694752 (Version 1)
Quarter: 2019Q3

REPORT INFORMATION
  Report Type: Report from Study
  Country: US (occurrence: US)
  Receive Date: 20190812
  Receipt Date: 20190812
  Transmission Date: 20191004
  Serious: No
  Sender: FDA-Public Use
  Company Number: US-INCYTE CORPORATION-2019IN007007

PATIENT

DRUGS (35)
  1. XYLOCAINE [Concomitant]
     Active Substance: LIDOCAINE HYDROCHLORIDE
     Indication: ARTHRALGIA
     Dosage: 2 MILLILITER 1%, ONCE
     Route: 065
     Dates: start: 20190117, end: 20190117
  2. DULCOLAX (BISACODYL) [Concomitant]
     Active Substance: BISACODYL
     Indication: PROPHYLAXIS
     Dosage: 50 MILLIGRAM, BID
     Route: 065
     Dates: start: 20190107, end: 20190417
  3. ROPINIROLE. [Concomitant]
     Active Substance: ROPINIROLE
     Indication: RESTLESS LEGS SYNDROME
     Dosage: 1 TABLET, QD
     Route: 065
     Dates: start: 20160602, end: 20160920
  4. JAKAFI [Suspect]
     Active Substance: RUXOLITINIB
     Indication: POLYCYTHAEMIA VERA
     Dosage: 10 MILLIGRAM, BID
     Route: 065
     Dates: start: 20190322, end: 20190407
  5. ASA [Concomitant]
     Active Substance: ASPIRIN
     Indication: POLYCYTHAEMIA VERA
     Dosage: 325 MILLIGRAM, QD
     Route: 065
     Dates: start: 201405, end: 20170914
  6. DULOXETINE. [Concomitant]
     Active Substance: DULOXETINE
     Indication: DEPRESSION
     Dosage: 60 MILLIGRAM, QD
     Route: 065
     Dates: start: 20180330, end: 20190624
  7. HYDREA [Concomitant]
     Active Substance: HYDROXYUREA
     Indication: POLYCYTHAEMIA VERA
     Dosage: 500 MILLIGRAM, QD
     Route: 065
     Dates: start: 20161201, end: 20170118
  8. HYDREA [Concomitant]
     Active Substance: HYDROXYUREA
     Dosage: 400 MILLIGRAM, QD
     Route: 065
     Dates: start: 20181228, end: 20190106
  9. IRON [Concomitant]
     Active Substance: IRON
     Indication: ANAEMIA
     Dosage: 65 MILLIGRAM, BID
     Route: 065
     Dates: start: 20170330, end: 20170601
  10. OMEPRAZOLE. [Concomitant]
     Active Substance: OMEPRAZOLE
     Indication: DYSPEPSIA
     Dosage: 20 MILLIGRAM, QD
     Route: 065
     Dates: start: 2013
  11. PREDNISONE. [Concomitant]
     Active Substance: PREDNISONE
     Indication: VERTIGO
     Dosage: 30 MILLIGRAM, QD
     Route: 065
     Dates: start: 20180115, end: 20180212
  12. PREDNISONE. [Concomitant]
     Active Substance: PREDNISONE
     Dosage: 20 MILLIGRAM, QD
     Route: 065
     Dates: start: 20180213, end: 20180429
  13. SERTRALINE [Concomitant]
     Active Substance: SERTRALINE HYDROCHLORIDE
     Indication: DEPRESSION
     Dosage: 100 MILLIGRAM, QD
     Route: 065
     Dates: start: 20180330
  14. DEXAMETHASONE. [Concomitant]
     Active Substance: DEXAMETHASONE
     Indication: VESTIBULAR DISORDER
     Dosage: 0.45 MILLILITER, ONCE
     Route: 065
     Dates: start: 20160211, end: 20160211
  15. XANAX [Concomitant]
     Active Substance: ALPRAZOLAM
     Indication: ANXIETY
     Dosage: 0.5 MILLIGRAM, QD
     Route: 065
     Dates: start: 20170614, end: 20180511
  16. JAKAFI [Suspect]
     Active Substance: RUXOLITINIB
     Dosage: 5 MG, BID
     Route: 065
     Dates: start: 20190408
  17. HYDREA [Concomitant]
     Active Substance: HYDROXYUREA
     Dosage: 500 MILLIGRAM, 6 DAYS PER WEEK
     Route: 065
     Dates: start: 20190107, end: 20190318
  18. LASIX [Concomitant]
     Active Substance: FUROSEMIDE
     Indication: PULMONARY OEDEMA
  19. PREDNISONE. [Concomitant]
     Active Substance: PREDNISONE
     Indication: LUNG DISORDER
     Dosage: 20 MILLIGRAM, QD
     Route: 065
     Dates: start: 20160114, end: 20160204
  20. TRAZODONE [Concomitant]
     Active Substance: TRAZODONE HYDROCHLORIDE
     Indication: SLEEP DISORDER
     Dosage: 100 MILLIGRAM, QD
     Route: 065
     Dates: start: 20170616, end: 20190624
  21. WARFARIN [Concomitant]
     Active Substance: WARFARIN
     Indication: PULMONARY EMBOLISM
     Dosage: 5 MILLIGRAM, QD
     Route: 065
     Dates: start: 20181011, end: 20190107
  22. ELIQUIS [Concomitant]
     Active Substance: APIXABAN
     Indication: COAGULOPATHY
     Dosage: 5 MILLIGRAM, BID
     Route: 065
     Dates: start: 20171024, end: 20181010
  23. LEVOFLOXACIN. [Concomitant]
     Active Substance: LEVOFLOXACIN
     Indication: PNEUMONIA
     Dosage: 500 MILLIGRAM, BID
     Route: 065
     Dates: start: 20171109, end: 20171110
  24. ZOFRAN [Concomitant]
     Active Substance: ONDANSETRON HYDROCHLORIDE
     Indication: NAUSEA
     Dosage: 8 MILLIGRAM, PRN
     Route: 065
     Dates: start: 20190118, end: 20190417
  25. LASIX [Concomitant]
     Active Substance: FUROSEMIDE
     Indication: DYSPNOEA
     Dosage: 20 MILLIGRAM, QD
     Route: 065
     Dates: start: 20170614
  26. METOPROLOL. [Concomitant]
     Active Substance: METOPROLOL
     Indication: HYPERTENSION
     Dosage: 25 MILLIGRAM, BID
     Route: 065
     Dates: start: 20170616
  27. XYLOCAINE [Concomitant]
     Active Substance: LIDOCAINE HYDROCHLORIDE
     Indication: ARTHRALGIA
     Dosage: 2 MILLILITER 1%, ONCE
     Route: 065
     Dates: start: 20190508, end: 20190508
  28. KLONOPIN [Concomitant]
     Active Substance: CLONAZEPAM
     Indication: SLEEP DISORDER
     Dosage: 0.5 MILLIGRAM, QD
     Route: 065
     Dates: start: 201411, end: 20160602
  29. MELATONIN [Concomitant]
     Active Substance: MELATONIN
     Indication: SLEEP DISORDER
     Dosage: 10 MILLIGRAM, QD
     Route: 065
     Dates: start: 20181018
  30. VICODIN [Concomitant]
     Active Substance: ACETAMINOPHEN\HYDROCODONE BITARTRATE
     Indication: PAIN
     Dosage: 5/325 MG, PRN
     Route: 065
     Dates: start: 20180206, end: 20190117
  31. CELEXA [Concomitant]
     Active Substance: CITALOPRAM HYDROBROMIDE
     Indication: DEPRESSION
     Dosage: 40 MILLIGRAM, QD
     Route: 065
     Dates: start: 1998, end: 20180329
  32. ENOXAPARIN                         /01708202/ [Concomitant]
     Active Substance: ENOXAPARIN SODIUM
     Indication: PULMONARY EMBOLISM
     Dosage: 90 MILLIGRAM, BID
     Route: 065
     Dates: start: 20190108
  33. MIRAPEX [Concomitant]
     Active Substance: PRAMIPEXOLE DIHYDROCHLORIDE
     Indication: RESTLESS LEGS SYNDROME
     Dosage: 0.25 MILLIGRAM, QD
     Route: 065
     Dates: start: 20161128, end: 20190624
  34. PREDNISONE. [Concomitant]
     Active Substance: PREDNISONE
     Dosage: 10 MILLIGRAM, QD
     Route: 065
     Dates: start: 20180430
  35. ZITHROMAX [Concomitant]
     Active Substance: AZITHROMYCIN DIHYDRATE
     Indication: URINARY TRACT INFECTION
     Dosage: 250 MILLIGRAM, BID
     Route: 065
     Dates: start: 20160107, end: 20160122

REACTIONS (3)
  - Arthralgia [Recovered/Resolved]
  - Liver function test increased [Recovered/Resolved]
  - Nail infection [Recovered/Resolved]

NARRATIVE: CASE EVENT DATE: 20190404
